FAERS Safety Report 18238945 (Version 1)
Quarter: 2020Q3

REPORT INFORMATION
  Report Type: Report from Study
  Country: US (occurrence: US)
  Receive Date: 20200907
  Receipt Date: 20200907
  Transmission Date: 20201103
  Serious: Yes (Other)
  Sender: FDA-Public Use
  Company Number: US-AMGEN-USANI2020000489

PATIENT
  Age: 66 Year
  Sex: Female
  Weight: 85.45 kg

DRUGS (13)
  1. PERTUZUMAB. [Concomitant]
     Active Substance: PERTUZUMAB
     Dosage: 420?840 MILLIGRAM
     Route: 042
     Dates: start: 20191021, end: 20191230
  2. DICLOFENAC [Concomitant]
     Active Substance: DICLOFENAC
     Dosage: 100 GRAM
     Route: 048
     Dates: start: 201903
  3. DEXAMETHASONE. [Concomitant]
     Active Substance: DEXAMETHASONE
     Dosage: 4 MILLIGRAM
     Route: 048
     Dates: start: 20191020
  4. LOPERAMIDE [Concomitant]
     Active Substance: LOPERAMIDE
     Dosage: 2 MILLIGRAM
     Route: 048
     Dates: start: 20191112
  5. PRAVASTATIN. [Concomitant]
     Active Substance: PRAVASTATIN
     Dosage: 20 MILLIGRAM
     Route: 048
     Dates: start: 2017
  6. CARBOPLATIN. [Concomitant]
     Active Substance: CARBOPLATIN
     Dosage: 595 MILLIGRAM
     Route: 042
     Dates: start: 20191021, end: 20191230
  7. DOCETAXEL. [Concomitant]
     Active Substance: DOCETAXEL
     Dosage: 138?141 MILLIGRAM
     Route: 042
     Dates: start: 20191021, end: 20191230
  8. ONDANSETRON [Concomitant]
     Active Substance: ONDANSETRON
     Dosage: 8 MILLIGRAM
     Route: 048
     Dates: start: 20191020
  9. PEGFILGRASTIM [Suspect]
     Active Substance: PEGFILGRASTIM
     Indication: NEUTROPENIA
     Dosage: 6 MILLIGRAM
     Route: 058
     Dates: start: 20191021
  10. LEVOCETIRIZINE DIHYDROCHLORIDE. [Concomitant]
     Active Substance: LEVOCETIRIZINE DIHYDROCHLORIDE
     Dosage: 5 MILLIGRAM
     Route: 048
     Dates: start: 2009
  11. TRASTUZUMAB. [Concomitant]
     Active Substance: TRASTUZUMAB
     Dosage: 509?679 MILLIGRAM
     Route: 042
     Dates: start: 20191021, end: 20191230
  12. OLOPATADINE. [Concomitant]
     Active Substance: OLOPATADINE
     Dosage: 1 UNK
     Route: 050
     Dates: start: 2014
  13. REFRESH [CARBOMER] [Concomitant]
     Active Substance: CARBOMER
     Dosage: 1 GTT DROPS
     Route: 050
     Dates: start: 2009

REACTIONS (3)
  - Thrombocytopenia [Recovered/Resolved]
  - Hypokalaemia [Not Recovered/Not Resolved]
  - Hypokalaemia [Recovered/Resolved]

NARRATIVE: CASE EVENT DATE: 20191212
